FAERS Safety Report 9838856 (Version 1)
Quarter: 2014Q1

REPORT INFORMATION
  Report Type: Spontaneous
  Country: US (occurrence: None)
  Receive Date: 20140117
  Receipt Date: 20140117
  Transmission Date: 20141002
  Serious: Yes (Other)
  Sender: FDA-Public Use
  Company Number: None

PATIENT
  Age: 88 Year
  Sex: Female
  Weight: 53.98 kg

DRUGS (2)
  1. ORENCIA [Suspect]
     Indication: RHEUMATOID ARTHRITIS
     Dosage: 750MG  EVERY 4 WEEKS  IV
     Route: 042
     Dates: start: 2008, end: 2013
  2. ALENDRONATE [Concomitant]

REACTIONS (1)
  - Diffuse large B-cell lymphoma [None]
